FAERS Safety Report 9018088 (Version 1)
Quarter: 2013Q1

REPORT INFORMATION
  Report Type: Spontaneous
  Country: HR (occurrence: HR)
  Receive Date: 20130117
  Receipt Date: 20130117
  Transmission Date: 20140127
  Serious: Yes (Hospitalization, Other)
  Sender: FDA-Public Use
  Company Number: PHHY2013HR003286

PATIENT
  Age: 63 Year
  Sex: Male

DRUGS (1)
  1. KETONAL [Suspect]
     Indication: SCIATICA
     Dosage: 2 DF, UNK
     Dates: start: 20121201, end: 20121222

REACTIONS (7)
  - Syncope [Recovered/Resolved]
  - Malaise [Recovered/Resolved]
  - Enterocolitis haemorrhagic [Recovered/Resolved]
  - Haematochezia [Recovered/Resolved]
  - Rectal haemorrhage [Recovered/Resolved]
  - Anaemia [Recovered/Resolved]
  - Overdose [Unknown]
